FAERS Safety Report 7350812-X (Version None)
Quarter: 2011Q1

REPORT INFORMATION
  Report Type: 
  Country: None (occurrence: None)
  Receive Date: 20110314
  Receipt Date: 20110304
  Transmission Date: 20110831
  Serious: No
  Sender: FDA-Public Use
  Company Number: US-PFIZER INC-2010178752

PATIENT
  Sex: Female
  Weight: 63 kg

DRUGS (4)
  1. METOPROLOL [Concomitant]
     Indication: HYPERTENSION
     Dosage: 50 MG, 1X/DAY
     Route: 048
  2. TIMOLOL [Suspect]
     Indication: GLAUCOMA
     Dosage: 1 DROP EACH EYE, DAILY IN THE EVENING
     Route: 047
  3. XALATAN [Suspect]
     Indication: INTRAOCULAR PRESSURE INCREASED
     Dosage: 1 DROP EACH EYE IN THE EVENING DAILY
     Route: 047
     Dates: start: 20101213
  4. WARFARIN SODIUM [Concomitant]
     Indication: ATRIAL FIBRILLATION
     Dosage: 5 MG, 1X/DAY
     Route: 048
     Dates: start: 20100801

REACTIONS (1)
  - NO ADVERSE EVENT [None]
